FAERS Safety Report 25037804 (Version 2)
Quarter: 2025Q1

REPORT INFORMATION
  Report Type: Spontaneous
  Country: US (occurrence: US)
  Receive Date: 20250304
  Receipt Date: 20250319
  Transmission Date: 20250409
  Serious: Yes (Death, Hospitalization, Other)
  Sender: NOVARTIS
  Company Number: US-002147023-NVSC2025US035177

PATIENT
  Sex: Male

DRUGS (1)
  1. EVEROLIMUS [Suspect]
     Active Substance: EVEROLIMUS
     Indication: Renal disorder
     Route: 065

REACTIONS (15)
  - Sepsis [Fatal]
  - Infection [Fatal]
  - Anaemia [Unknown]
  - Post transplant lymphoproliferative disorder [Unknown]
  - Diabetes mellitus inadequate control [Unknown]
  - Pain [Unknown]
  - Injury [Unknown]
  - Diabetic wound [Unknown]
  - Immune system disorder [Unknown]
  - General physical health deterioration [Unknown]
  - Mobility decreased [Unknown]
  - Impaired healing [Unknown]
  - Incoherent [Unknown]
  - Psychotic disorder [Unknown]
  - Adverse drug reaction [Unknown]

NARRATIVE: CASE EVENT DATE: 20250106
